FAERS Safety Report 5216806-5 (Version None)
Quarter: 2007Q1

REPORT INFORMATION
  Report Type: 
  Country: None (occurrence: None)
  Receive Date: 20070119
  Receipt Date: 20070115
  Transmission Date: 20070707
  Serious: Yes (Other)
  Sender: FDA-Public Use
  Company Number: 163-C5013-06081017

PATIENT
  Age: 29 Year
  Sex: Male
  Weight: 89.8122 kg

DRUGS (3)
  1. CC-5013\PLACEBO (LENALIDOMIDE) (10 MILLIGRAM, CAPSULES) [Suspect]
     Indication: COMPLEX REGIONAL PAIN SYNDROME
     Dosage: 10 MG, 1 IN 1 D, ORAL
     Route: 048
     Dates: start: 20060427, end: 20060716
  2. CC-5013 (LENALIDOMIDE) (10 MILLIGRAM, CAPSULES) [Suspect]
     Indication: COMPLEX REGIONAL PAIN SYNDROME
     Dosage: 10 MG, 1 IN 1 D, ORAL
     Route: 048
     Dates: start: 20060717, end: 20060802
  3. LEXAPRO [Concomitant]

REACTIONS (1)
  - PREGNANCY OF PARTNER [None]
